FAERS Safety Report 20220987 (Version 2)
Quarter: 2024Q4

REPORT INFORMATION
  Report Type: Report from Study
  Country: US (occurrence: US)
  Receive Date: 20211223
  Receipt Date: 20241022
  Transmission Date: 20250115
  Serious: Yes (Death, Other)
  Sender: AMGEN
  Company Number: US-HORIZON THERAPEUTICS-HZN-2021-009816

PATIENT
  Age: 71 Year
  Sex: Female

DRUGS (2)
  1. KRYSTEXXA [Suspect]
     Active Substance: PEGLOTICASE
     Indication: Gout
     Dosage: 1ST INFUSION
     Route: 042
     Dates: start: 20210421, end: 20240913
  2. Iron complex [Concomitant]
     Indication: Supplementation therapy
     Dosage: UNK
     Route: 065

REACTIONS (4)
  - Death [Fatal]
  - Renal impairment [Unknown]
  - Diarrhoea [Unknown]
  - Abdominal discomfort [Unknown]

NARRATIVE: CASE EVENT DATE: 20240101
